FAERS Safety Report 17424474 (Version 3)
Quarter: 2020Q1

REPORT INFORMATION
  Report Type: Report from Study
  Country: NL (occurrence: NL)
  Receive Date: 20200217
  Receipt Date: 20200219
  Transmission Date: 20200409
  Serious: Yes (Life-Threatening, Hospitalization)
  Sender: FDA-Public Use
  Company Number: NL-ROCHE-2545637

PATIENT
  Age: 71 Year
  Sex: Female

DRUGS (7)
  1. CARBOPLATIN. [Suspect]
     Active Substance: CARBOPLATIN
     Indication: HER-2 POSITIVE BREAST CANCER
     Dosage: DOSE: 6 MG*ML/MIN?ON 23/JAN/2020, SHE RECEIVED THE MOST RECENT DOSE (500 MG AUC) OF CARBOPLATIN PRIO
     Route: 042
     Dates: start: 20191128
  2. METOCLOPRAMIDE. [Concomitant]
     Active Substance: METOCLOPRAMIDE
     Route: 048
     Dates: start: 20200130, end: 20200204
  3. PERTUZUMAB. [Suspect]
     Active Substance: PERTUZUMAB
     Indication: HER-2 POSITIVE BREAST CANCER
     Dosage: LOADING DOSE?ON 23/JAN/2020, SHE RECEIVED THE MOST RECENT DOSE (315 MG) OF PERTUZUMAB PRIOR TO SERIO
     Route: 042
     Dates: start: 20191128
  4. ENALAPRIL [Concomitant]
     Active Substance: ENALAPRIL
     Route: 048
     Dates: start: 20191021
  5. TRASTUZUMAB. [Suspect]
     Active Substance: TRASTUZUMAB
     Indication: HER-2 POSITIVE BREAST CANCER
     Dosage: LOADING DOSE?ON 23/JAN/2020, SHE RECEIVED THE MOST RECENT DOSE (480 MG) OF TRASTUZUMAB PRIOR TO SERI
     Route: 042
     Dates: start: 20191128
  6. PACLITAXEL. [Suspect]
     Active Substance: PACLITAXEL
     Indication: HER-2 POSITIVE BREAST CANCER
     Dosage: ON 30/JAN/2020, SHE RECEIVED THE MOST RECENT DOSE (151 MG) OF PACLITAXEL PRIOR TO SERIOUS ADVERSE EV
     Route: 042
     Dates: start: 20191128
  7. AMLODIPINE [Concomitant]
     Active Substance: AMLODIPINE BESYLATE
     Route: 048
     Dates: start: 20191021

REACTIONS (1)
  - Dehydration [Recovered/Resolved]

NARRATIVE: CASE EVENT DATE: 20200204
